FAERS Safety Report 20567804 (Version 1)
Quarter: 2022Q1

REPORT INFORMATION
  Report Type: Spontaneous
  Country: TW (occurrence: TW)
  Receive Date: 20220308
  Receipt Date: 20220308
  Transmission Date: 20220423
  Serious: Yes (Other)
  Sender: FDA-Public Use
  Company Number: TW-002147023-NVSC2022TW044056

PATIENT
  Age: 66 Year
  Sex: Male

DRUGS (1)
  1. LUCENTIS [Suspect]
     Active Substance: RANIBIZUMAB
     Indication: Neovascular age-related macular degeneration
     Dosage: 0.5 MG
     Route: 050
     Dates: start: 20210225

REACTIONS (3)
  - Choroidal neovascularisation [Unknown]
  - Macular oedema [Unknown]
  - Visual impairment [Unknown]

NARRATIVE: CASE EVENT DATE: 20210311
